FAERS Safety Report 9799812 (Version 2)
Quarter: 2014Q1

REPORT INFORMATION
  Report Type: Spontaneous
  Country: US (occurrence: US)
  Receive Date: 20140106
  Receipt Date: 20140106
  Transmission Date: 20141002
  Serious: No
  Sender: FDA-Public Use
  Company Number: US-GILEAD-2010-0032618

PATIENT
  Age: 57 Year
  Sex: Female

DRUGS (10)
  1. LETAIRIS [Suspect]
     Indication: PULMONARY HYPERTENSION
     Route: 048
     Dates: start: 20090925
  2. LETAIRIS [Suspect]
     Route: 048
     Dates: start: 20100331
  3. LETAIRIS [Suspect]
     Route: 048
     Dates: start: 20101013
  4. REVATIO [Concomitant]
  5. COUMADIN [Concomitant]
  6. LASIX [Concomitant]
  7. KCL [Concomitant]
  8. PRAVASTATIN [Concomitant]
  9. ATENOLOL [Concomitant]
  10. AMBIEN [Concomitant]

REACTIONS (1)
  - Hepatic enzyme increased [Unknown]
